FAERS Safety Report 13883299 (Version 2)
Quarter: 2017Q3

REPORT INFORMATION
  Report Type: Spontaneous
  Country: CH (occurrence: CH)
  Receive Date: 20170818
  Receipt Date: 20170914
  Transmission Date: 20171127
  Serious: Yes (Hospitalization)
  Sender: FDA-Public Use
  Company Number: CH-PFIZER INC-2017353480

PATIENT
  Age: 21 Year
  Sex: Female

DRUGS (8)
  1. VENLAFAXINE HCL [Suspect]
     Active Substance: VENLAFAXINE HYDROCHLORIDE
     Dosage: MAX 8700MG RETARD AND 1050MG NORMAL INGESTED ON THE BASIS OF EMPTY BLISTER PACKS
     Route: 048
     Dates: start: 20170122, end: 20170123
  2. RELPAX [Suspect]
     Active Substance: ELETRIPTAN HYDROBROMIDE
     Dosage: MAXIMUM 40 MG INGESTED ON THE BASIS OF EMPTY BLISTER PACKS.
     Route: 048
     Dates: start: 20170122, end: 20170122
  3. HUMULUS LUPULUS EXTRACT/VALERIAN ROOT [Suspect]
     Active Substance: HERBALS\HOPS\VALERIAN
     Dosage: MAXIMUM 15 TABLETS INGESTED ON THE BASIS OF EMPTY BLISTER PACKS.
     Route: 048
     Dates: start: 20170122, end: 20170122
  4. DULOXETINE. [Suspect]
     Active Substance: DULOXETINE
     Dosage: MAXIMUM 510 MG INGESTED ON THE BASIS OF EMPTY BLISTER PACKS.
     Route: 048
     Dates: start: 20170122, end: 20170122
  5. TRAMAL [Suspect]
     Active Substance: TRAMADOL
     Dosage: MAXIMUM 500 MG INGESTED ON THE BASIS OF EMPTY BLISTER PACKS.
     Route: 048
     Dates: start: 20170122, end: 20170122
  6. SIRDALUD [Suspect]
     Active Substance: TIZANIDINE
     Dosage: MAXIMUM 56 MG INGESTED ON THE BASIS OF EMPTY BLISTER PACKS.
     Route: 048
     Dates: start: 20170122, end: 20170122
  7. IRFEN [Suspect]
     Active Substance: IBUPROFEN
     Dosage: MAX 14400MG RETARD AND 20600MG NORMAL INGESTED ON THE BASIS OF EMPTY BLISTER PACKS.
     Route: 048
     Dates: start: 20170122, end: 20170122
  8. DAFALGAN [Suspect]
     Active Substance: ACETAMINOPHEN
     Dosage: MAXIMUM 30G INGESTED ON THE BASIS OF EMPTY BLISTER PACKS.
     Route: 048
     Dates: start: 20170122, end: 20170122

REACTIONS (6)
  - Eyelid myoclonus [Recovered/Resolved]
  - Mydriasis [Recovered/Resolved]
  - Intentional overdose [Recovered/Resolved]
  - Somnolence [Recovered/Resolved]
  - Chills [Recovered/Resolved]
  - Confusional state [Recovered/Resolved]

NARRATIVE: CASE EVENT DATE: 20170122
